FAERS Safety Report 5621635-4 (Version None)
Quarter: 2008Q1

REPORT INFORMATION
  Report Type: 
  Country: None (occurrence: None)
  Receive Date: 20080211
  Receipt Date: 20080128
  Transmission Date: 20080703
  Serious: Yes (Life-Threatening, Hospitalization)
  Sender: FDA-Public Use
  Company Number: GB-BAUSCH-2008BL000325

PATIENT
  Age: 47 Year
  Sex: Male

DRUGS (8)
  1. ACETAMINOPHEN [Suspect]
     Indication: INFLUENZA
     Route: 048
     Dates: start: 20070730, end: 20070731
  2. ACETAMINOPHEN [Suspect]
     Indication: NASOPHARYNGITIS
     Route: 048
     Dates: start: 20070730, end: 20070731
  3. PHENYLEPHRINE HYDROCHLORIDE [Suspect]
     Indication: INFLUENZA
     Route: 048
     Dates: start: 20070730, end: 20070731
  4. PHENYLEPHRINE HYDROCHLORIDE [Suspect]
     Indication: NASOPHARYNGITIS
     Route: 048
     Dates: start: 20070730, end: 20070731
  5. CAFFEINE [Suspect]
     Indication: INFLUENZA
     Route: 048
     Dates: start: 20070730, end: 20070731
  6. CAFFEINE [Suspect]
     Indication: NASOPHARYNGITIS
     Route: 048
     Dates: start: 20070730, end: 20070731
  7. ESCITALOPRAM [Concomitant]
  8. MIRTAZAPINE [Concomitant]

REACTIONS (1)
  - SUBARACHNOID HAEMORRHAGE [None]
